FAERS Safety Report 18549811 (Version 2)
Quarter: 2020Q4

REPORT INFORMATION
  Report Type: Spontaneous
  Country: CL (occurrence: CL)
  Receive Date: 20201126
  Receipt Date: 20201228
  Transmission Date: 20210114
  Serious: Yes (Hospitalization, Other)
  Sender: FDA-Public Use
  Company Number: CL-ORION CORPORATION ORION PHARMA-20_00011884

PATIENT
  Age: 67 Year
  Sex: Female

DRUGS (5)
  1. METHOTREXATE (METHOTREXATE SODIUM) [Suspect]
     Active Substance: METHOTREXATE SODIUM
     Indication: PSORIATIC ARTHROPATHY
     Dosage: 4 IN THE MORNING, 7 IN THE EVENING
     Route: 065
     Dates: end: 20200309
  2. HIDROCLOROTIAZIDE [Concomitant]
     Active Substance: HYDROCHLOROTHIAZIDE
     Route: 065
  3. ATENOLOL. [Concomitant]
     Active Substance: ATENOLOL
     Route: 065
  4. CARDIOASPIRINA [Concomitant]
     Active Substance: ASPIRIN
     Route: 065
  5. PREDNISONA [Concomitant]
     Active Substance: PREDNISONE
     Route: 065

REACTIONS (14)
  - Pain [Unknown]
  - Hypertension [Unknown]
  - Psoriasis [Unknown]
  - Limb injury [Recovering/Resolving]
  - Product use issue [Unknown]
  - Asthenia [Recovered/Resolved]
  - Eye disorder [Not Recovered/Not Resolved]
  - Fatigue [Recovered/Resolved]
  - Skin atrophy [Unknown]
  - Blindness unilateral [Not Recovered/Not Resolved]
  - Dysstasia [Not Recovered/Not Resolved]
  - Weight decreased [Unknown]
  - Discomfort [Recovered/Resolved]
  - Swelling [Unknown]

NARRATIVE: CASE EVENT DATE: 202003
